FAERS Safety Report 8916926 (Version 1)
Quarter: 2012Q4

REPORT INFORMATION
  Report Type: 
  Country: US (occurrence: US)
  Receive Date: 20121120
  Receipt Date: 20121120
  Transmission Date: 20130627
  Serious: No
  Sender: FDA-Public Use
  Company Number: US-009507513-1211USA005502

PATIENT
  Age: 18 Year
  Sex: Female

DRUGS (2)
  1. SINGULAIR [Suspect]
     Indication: ASTHMA
     Dosage: 10 mg, UNK
     Route: 048
     Dates: start: 1997
  2. SINGULAIR [Suspect]
     Dosage: 0.5 DF(1 half tablet:5 mg), qd
     Route: 048

REACTIONS (5)
  - Epistaxis [Recovering/Resolving]
  - Wrong technique in drug usage process [Unknown]
  - Drug ineffective [Unknown]
  - Cough [Recovering/Resolving]
  - Wheezing [Recovering/Resolving]
